FAERS Safety Report 10376295 (Version 1)
Quarter: 2014Q3

REPORT INFORMATION
  Report Type: Spontaneous
  Country: GB (occurrence: GB)
  Receive Date: 20140811
  Receipt Date: 20140811
  Transmission Date: 20150326
  Serious: Yes (Hospitalization)
  Sender: FDA-Public Use
  Company Number: GB-WATSON-2014-17137

PATIENT
  Age: 84 Year
  Sex: Male

DRUGS (6)
  1. CITRIC ACID [Concomitant]
     Active Substance: CITRIC ACID MONOHYDRATE
     Indication: PRODUCT USED FOR UNKNOWN INDICATION
     Dosage: UNK
     Route: 065
  2. DOXYCYCLINE. [Concomitant]
     Active Substance: DOXYCYCLINE
     Indication: PRODUCT USED FOR UNKNOWN INDICATION
     Dosage: UNK
     Route: 065
  3. LACTULOSE. [Concomitant]
     Active Substance: LACTULOSE
     Indication: PRODUCT USED FOR UNKNOWN INDICATION
     Dosage: UNK
     Route: 065
  4. RANITIDINE [Concomitant]
     Active Substance: RANITIDINE\RANITIDINE HYDROCHLORIDE
     Indication: PRODUCT USED FOR UNKNOWN INDICATION
     Dosage: UNK
     Route: 065
  5. ALGINIC ACID [Concomitant]
     Active Substance: ALGINIC ACID
     Indication: PRODUCT USED FOR UNKNOWN INDICATION
     Dosage: UNK
     Route: 065
  6. LISINOPRIL (UNKNOWN) [Suspect]
     Active Substance: LISINOPRIL
     Indication: HYPERTENSION
     Dosage: 10 MG, DAILY
     Route: 048
     Dates: end: 20140714

REACTIONS (4)
  - Confusional state [Recovering/Resolving]
  - Inappropriate antidiuretic hormone secretion [Recovering/Resolving]
  - Hyponatraemia [Recovering/Resolving]
  - Urine sodium increased [Recovering/Resolving]

NARRATIVE: CASE EVENT DATE: 20140712
